FAERS Safety Report 22354502 (Version 1)
Quarter: 2023Q2

REPORT INFORMATION
  Report Type: Spontaneous
  Country: GB (occurrence: GB)
  Receive Date: 20230523
  Receipt Date: 20230523
  Transmission Date: 20230721
  Serious: Yes (Other)
  Sender: FDA-Public Use
  Company Number: GB-MHRA-MED-202305131847377540-JFBZD

PATIENT
  Age: 25 Year
  Sex: Female
  Weight: 55 kg

DRUGS (1)
  1. CLARITHROMYCIN [Suspect]
     Active Substance: CLARITHROMYCIN
     Indication: Otitis media
     Dosage: 1000 MILLIGRAM DAILY;
     Route: 065
     Dates: start: 20230511, end: 20230513

REACTIONS (4)
  - Suicidal ideation [Recovering/Resolving]
  - Sleep terror [Recovered/Resolved]
  - Tinnitus [Recovering/Resolving]
  - Anxiety [Recovered/Resolved]

NARRATIVE: CASE EVENT DATE: 20230512
